FAERS Safety Report 14577281 (Version 1)
Quarter: 2018Q1

REPORT INFORMATION
  Report Type: Spontaneous
  Country: US (occurrence: US)
  Receive Date: 20180226
  Receipt Date: 20180226
  Transmission Date: 20180509
  Serious: Yes (Disabling)
  Sender: FDA-Public Use
  Company Number: None

PATIENT
  Age: 75 Year
  Sex: Male
  Weight: 81 kg

DRUGS (2)
  1. TELMISARTAN/HCT [Suspect]
     Active Substance: HYDROCHLOROTHIAZIDE\TELMISARTAN
     Indication: HYPERTENSION
     Dosage: ?          QUANTITY:60 TABLET(S);?
     Route: 048
     Dates: start: 20180115, end: 20180201
  2. GUANFACINE. [Concomitant]
     Active Substance: GUANFACINE

REACTIONS (2)
  - Blood pressure increased [None]
  - Product physical issue [None]

NARRATIVE: CASE EVENT DATE: 20180201
